FAERS Safety Report 17586836 (Version 1)
Quarter: 2020Q1

REPORT INFORMATION
  Report Type: Spontaneous
  Country: GT (occurrence: GT)
  Receive Date: 20200326
  Receipt Date: 20200326
  Transmission Date: 20200409
  Serious: Yes (Other)
  Sender: FDA-Public Use
  Company Number: NVSC2020GT083878

PATIENT
  Sex: Female

DRUGS (1)
  1. CARVEDILOL. [Suspect]
     Active Substance: CARVEDILOL
     Indication: PRODUCT USED FOR UNKNOWN INDICATION
     Dosage: 3.25 OT, Q12H
     Route: 065

REACTIONS (5)
  - Heart rate decreased [Unknown]
  - Chest pain [Unknown]
  - Hypertension [Unknown]
  - Headache [Unknown]
  - Hypothyroidism [Unknown]
